FAERS Safety Report 8168206 (Version 6)
Quarter: 2014Q1

REPORT INFORMATION
  Report Type: Spontaneous
  Country: US (occurrence: US)
  Receive Date: 20111004
  Receipt Date: 20140110
  Transmission Date: 20141002
  Serious: Yes (Death, Hospitalization)
  Sender: FDA-Public Use
  Company Number: US-GLAXOSMITHKLINE-B0752537A

PATIENT
  Age: 68 Year
  Sex: Female
  Weight: 78.6 kg

DRUGS (3)
  1. AVANDAMET [Suspect]
     Indication: DIABETES MELLITUS
     Dosage: 1TAB TWICE PER DAY
     Route: 048
     Dates: start: 20040507, end: 20100826
  2. AVANDARYL [Suspect]
     Indication: DIABETES MELLITUS
     Route: 048
  3. AVANDIA [Suspect]
     Indication: DIABETES MELLITUS
     Route: 048

REACTIONS (9)
  - Cerebral circulatory failure [Fatal]
  - Myocardial infarction [Fatal]
  - Cerebrovascular accident [Unknown]
  - Cardiac failure congestive [Unknown]
  - Chest pain [Unknown]
  - Coronary artery disease [Unknown]
  - Dyspnoea [Unknown]
  - Cardio-respiratory arrest [Unknown]
  - Renal failure acute [Unknown]
